FAERS Safety Report 4625704-7 (Version None)
Quarter: 2005Q1

REPORT INFORMATION
  Report Type: 
  Country: None (occurrence: None)
  Receive Date: 20050330
  Receipt Date: 20050311
  Transmission Date: 20050727
  Serious: Yes (Hospitalization)
  Sender: FDA-Public Use
  Company Number: EWC050343170

PATIENT
  Age: 10 Year
  Sex: Male
  Weight: 52 kg

DRUGS (2)
  1. ATOMOXETINE HYDROCHLORIDE [Suspect]
     Indication: ATTENTION DEFICIT/HYPERACTIVITY DISORDER
     Dosage: 60 MG/1 DAY
     Dates: start: 20040813
  2. ATOMOXETINE HYDROCHLORIDE [Suspect]
     Indication: OPPOSITIONAL DEFIANT DISORDER
     Dosage: 60 MG/1 DAY
     Dates: start: 20040813

REACTIONS (1)
  - APPENDICITIS [None]
